FAERS Safety Report 14568371 (Version 3)
Quarter: 2018Q2

REPORT INFORMATION
  Report Type: Spontaneous
  Country: BR (occurrence: BR)
  Receive Date: 20180223
  Receipt Date: 20180518
  Transmission Date: 20180711
  Serious: Yes (Death, Hospitalization, Other)
  Sender: FDA-Public Use
  Company Number: BR-AMGEN-BRASP2015067088

PATIENT
  Age: 81 Year
  Sex: Female
  Weight: 60 kg

DRUGS (8)
  1. HORSE CHESTNUT EXTRACT [Concomitant]
     Active Substance: HORSE CHESTNUT
     Indication: VARICOSE VEIN
     Dosage: 50 MG, DAILY (1 CAPSULE OF STRENGTH 50 MG)
     Route: 065
  2. LOSARTAN. [Concomitant]
     Active Substance: LOSARTAN
     Dosage: UNK
  3. ENBREL [Suspect]
     Active Substance: ETANERCEPT
     Indication: RHEUMATOID ARTHRITIS
     Dosage: 25 MG, EVERY 3 DAYS
     Route: 065
     Dates: start: 201504, end: 201505
  4. ENBREL [Suspect]
     Active Substance: ETANERCEPT
     Dosage: UNK
     Route: 065
     Dates: end: 20170308
  5. PREDNISONE. [Concomitant]
     Active Substance: PREDNISONE
     Indication: RHEUMATOID ARTHRITIS
     Dosage: 10 MG, DAILY (2 TABLETS OF STRENGTH 5 MG)
     Route: 065
  6. ENBREL [Suspect]
     Active Substance: ETANERCEPT
     Dosage: 25 MG, EVERY 3 DAYS
     Route: 065
     Dates: start: 201506, end: 201507
  7. ENBREL [Suspect]
     Active Substance: ETANERCEPT
     Dosage: 50 MG, QWK
     Route: 058
  8. OMEPRAZOLE. [Concomitant]
     Active Substance: OMEPRAZOLE
     Indication: GASTRITIS
     Dosage: 40 MG, DAILY (2 TABLETS OF STRENGTH 20 MG)
     Route: 065

REACTIONS (11)
  - Speech disorder [Not Recovered/Not Resolved]
  - Drug effect incomplete [Not Recovered/Not Resolved]
  - Lung neoplasm [Fatal]
  - Seizure [Not Recovered/Not Resolved]
  - Second primary malignancy [Fatal]
  - Hemiplegia [Not Recovered/Not Resolved]
  - Brain neoplasm [Fatal]
  - Brain cancer metastatic [Fatal]
  - Coma [Not Recovered/Not Resolved]
  - Fall [Not Recovered/Not Resolved]
  - Renal failure [Not Recovered/Not Resolved]

NARRATIVE: CASE EVENT DATE: 201506
